FAERS Safety Report 17293557 (Version 1)
Quarter: 2020Q1

REPORT INFORMATION
  Report Type: Spontaneous
  Country: ES (occurrence: ES)
  Receive Date: 20200121
  Receipt Date: 20200121
  Transmission Date: 20200409
  Serious: Yes (Other)
  Sender: FDA-Public Use
  Company Number: NVSC2020ES010561

PATIENT
  Age: 44 Year

DRUGS (1)
  1. RYDAPT [Suspect]
     Active Substance: MIDOSTAURIN
     Indication: ACUTE MYELOID LEUKAEMIA
     Dosage: 100 MG, QD
     Route: 048
     Dates: start: 20191104, end: 20191223

REACTIONS (3)
  - Thrombocytopenia [Not Recovered/Not Resolved]
  - Aplasia [Not Recovered/Not Resolved]
  - Neutropenia [Not Recovered/Not Resolved]
